FAERS Safety Report 20656105 (Version 1)
Quarter: 2022Q1

REPORT INFORMATION
  Report Type: Report from Study
  Country: US (occurrence: US)
  Receive Date: 20220330
  Receipt Date: 20220330
  Transmission Date: 20220423
  Serious: Yes (Other)
  Sender: FDA-Public Use
  Company Number: US-ABBVIE-22K-163-4336958-00

PATIENT
  Age: 68 Year
  Sex: Male

DRUGS (4)
  1. HUMIRA [Suspect]
     Active Substance: ADALIMUMAB
     Indication: Psoriasis
     Dosage: CITRATE FREE
     Route: 058
  2. PFIZER-BIONTECH COVID-19 VACCINE [Suspect]
     Active Substance: TOZINAMERAN
     Indication: COVID-19 immunisation
     Route: 030
  3. PFIZER-BIONTECH COVID-19 VACCINE [Suspect]
     Active Substance: TOZINAMERAN
     Route: 030
  4. PFIZER-BIONTECH COVID-19 VACCINE [Suspect]
     Active Substance: TOZINAMERAN
     Dosage: BOOSTER
     Route: 030

REACTIONS (2)
  - Actinic keratosis [Not Recovered/Not Resolved]
  - SARS-CoV-2 test positive [Recovered/Resolved]

NARRATIVE: CASE EVENT DATE: 20220201
